FAERS Safety Report 7488476-7 (Version None)
Quarter: 2011Q2

REPORT INFORMATION
  Report Type: 
  Country: None (occurrence: None)
  Receive Date: 20110518
  Receipt Date: 20110513
  Transmission Date: 20111010
  Serious: Yes (Hospitalization, Disabling, Other)
  Sender: FDA-Public Use
  Company Number: PHFR2011GB02540

PATIENT
  Sex: Female
  Weight: 77 kg

DRUGS (20)
  1. ALENDRONIC ACID [Concomitant]
     Indication: OSTEOPOROSIS
     Dosage: 70MG
     Route: 048
     Dates: start: 20030930
  2. CALCIUM CARBONATE W/COLECALCIFEROL [Concomitant]
     Dosage: 1.25G AND 5UG
     Route: 048
     Dates: start: 20090528
  3. CARBOCISTEINE [Concomitant]
     Dosage: 750 MG, TID
     Route: 048
     Dates: start: 20080703
  4. EZETIMIBE [Concomitant]
     Dosage: 10 MG, QD
     Route: 048
     Dates: start: 20070510
  5. FUROSEMIDE [Concomitant]
     Dosage: 80 MG, QD
     Dates: start: 20030612
  6. SALBUTAMOL NEBULISER SOLOUTION [Concomitant]
     Dosage: 5MG/2.5ML
     Dates: start: 20030424
  7. SPIRONOLACTONE [Concomitant]
     Dosage: 25 MG, QD
     Dates: start: 20060130
  8. NEORAL [Suspect]
     Dosage: 100MG
     Route: 048
     Dates: start: 20080909, end: 20100127
  9. WARFARIN SODIUM [Concomitant]
     Dosage: 3MG
     Route: 048
  10. ACETAMINOPHEN [Concomitant]
     Dosage: 500-1000MG
     Dates: start: 20090921
  11. TIOTROPIUM [Concomitant]
     Dosage: UNK
     Dates: start: 20060817
  12. NEORAL [Suspect]
     Indication: NEPHROTIC SYNDROME
     Dosage: 50MG
     Route: 048
     Dates: start: 20070530, end: 20080805
  13. NEORAL [Suspect]
     Dosage: 200MG
     Dates: start: 20060130, end: 20070227
  14. BUDESONIDE W/FORMOTEROL FUMARATE [Concomitant]
     Dosage: 400UG AND 12UG/ACTUATION 1 PUFF BD
     Dates: start: 20050725
  15. CITALOPRAM [Concomitant]
     Dosage: 40 MG, QD
     Route: 048
     Dates: start: 20061116
  16. CODEINE PHOSPHATE [Concomitant]
     Dosage: 30 -60 MG, PRN
     Route: 048
     Dates: start: 20090615
  17. DOXAZOSIN MESYLATE [Concomitant]
     Dosage: 8 MG, QD
     Route: 048
     Dates: start: 20070817
  18. LERCANIDIPINE [Concomitant]
     Dosage: 10 MG, QD
     Route: 048
     Dates: start: 20080617
  19. TERBUTALINE SULFATE [Concomitant]
     Dosage: 1-2PUFF
  20. OMEPRAZOLE [Concomitant]
     Dosage: 20 MG, BID
     Route: 048
     Dates: start: 20060420

REACTIONS (4)
  - PSEUDOMONAS TEST POSITIVE [None]
  - LOWER RESPIRATORY TRACT INFECTION [None]
  - CHRONIC OBSTRUCTIVE PULMONARY DISEASE [None]
  - ESCHERICHIA INFECTION [None]
